FAERS Safety Report 5136017-1 (Version None)
Quarter: 2006Q4

REPORT INFORMATION
  Report Type: 
  Country: None (occurrence: None)
  Receive Date: 20061020
  Receipt Date: 20061009
  Transmission Date: 20070319
  Serious: Yes (Hospitalization)
  Sender: FDA-Public Use
  Company Number: 2006115150

PATIENT
  Age: 59 Year
  Sex: Male

DRUGS (7)
  1. SUTENT [Suspect]
     Indication: RENAL CELL CARCINOMA STAGE UNSPECIFIED
     Dosage: 50 MG (50 MG,1 IN 1 D), ORAL
     Route: 048
     Dates: start: 20060704
  2. MS CONTIN [Concomitant]
  3. PROBANTHINE(PROPANTHELINE BROMIDE) [Concomitant]
  4. IBUPROFEN [Concomitant]
  5. BONJELA (CETALKONIUM CHLORIDE, CHOLINE SALICYLATE, ETHANOL, GLYCEROL, [Concomitant]
  6. NILSTAT (NYSTATIN) [Concomitant]
  7. DIFFLAM (BENZYDAMINE HYDROCHLORIDE) [Concomitant]

REACTIONS (2)
  - CONSTIPATION [None]
  - PNEUMONIA [None]
